FAERS Safety Report 7520748-X (Version None)
Quarter: 2011Q2

REPORT INFORMATION
  Report Type: 
  Country: None (occurrence: None)
  Receive Date: 20110603
  Receipt Date: 20101122
  Transmission Date: 20111010
  Serious: Yes (Hospitalization)
  Sender: FDA-Public Use
  Company Number: IT-BAYER-2010-000603

PATIENT
  Age: 76 Year
  Sex: Female

DRUGS (6)
  1. COUMADIN [Interacting]
     Indication: ATRIAL FIBRILLATION
     Dosage: 42.5 MG, UNK
     Route: 048
     Dates: start: 20080101, end: 20100810
  2. GLUCOPHAGE [Concomitant]
     Dosage: 1700 MG, UNK
     Route: 048
     Dates: start: 20000101, end: 20100810
  3. CIPROFLOXACIN [Interacting]
     Indication: UPPER RESPIRATORY TRACT INFECTION
     Dosage: 1000 MG, QD
     Route: 048
     Dates: start: 20100806, end: 20100810
  4. CARVEDILOL [Concomitant]
     Dosage: 50 MG, UNK
     Route: 048
     Dates: start: 20000101, end: 20100810
  5. AULIN [Suspect]
     Indication: UPPER RESPIRATORY TRACT INFECTION
     Dosage: 50 MG, QD
     Route: 048
     Dates: start: 20100801, end: 20100811
  6. RAMIPRIL [Concomitant]
     Dosage: 1.25 MG, UNK
     Route: 048
     Dates: start: 20000101, end: 20100810

REACTIONS (2)
  - HAEMORRHAGE [None]
  - ABDOMINAL WALL HAEMATOMA [None]
